FAERS Safety Report 6215626-2 (Version None)
Quarter: 2009Q2

REPORT INFORMATION
  Report Type: 
  Country: None (occurrence: None)
  Receive Date: 20090605
  Receipt Date: 20071115
  Transmission Date: 20091009
  Serious: Yes (Other)
  Sender: FDA-Public Use
  Company Number: US-ASTRAZENECA-2006UW08225

PATIENT
  Age: 22894 Day
  Sex: Female
  Weight: 72.6 kg

DRUGS (16)
  1. SEROQUEL [Suspect]
     Indication: DEPRESSION
     Route: 048
     Dates: start: 19980101, end: 20060101
  2. SEROQUEL [Suspect]
     Indication: SLEEP DISORDER
     Route: 048
     Dates: start: 19980101, end: 20060101
  3. SEROQUEL [Suspect]
     Dosage: 100 MG TO 200 MG DAILY
     Route: 048
     Dates: start: 20010216
  4. SEROQUEL [Suspect]
     Dosage: 100 MG TO 200 MG DAILY
     Route: 048
     Dates: start: 20010216
  5. PROZAC [Concomitant]
     Indication: DEPRESSION
     Route: 048
  6. PREMARIN [Concomitant]
     Route: 048
  7. OXYCONTIN [Concomitant]
     Indication: BACK PAIN
     Route: 048
  8. HYDROCHLOROTHIAZIDE [Concomitant]
     Route: 048
  9. EFFEXOR XR [Concomitant]
     Route: 048
  10. KLONOPIN [Concomitant]
     Dosage: 1 MG TO 1.5 MG DAILY
  11. MONOPRIL [Concomitant]
  12. ZANTAC [Concomitant]
  13. NEXIUM [Concomitant]
     Indication: GASTROOESOPHAGEAL REFLUX DISEASE
     Route: 048
  14. ENALAPRIL MALEATE [Concomitant]
  15. DIAZEPAM [Concomitant]
  16. CYMBALTA [Concomitant]
     Indication: DEPRESSION
     Dosage: 30 MG TO 60 MG

REACTIONS (4)
  - BLOOD CHOLESTEROL INCREASED [None]
  - DIABETES MELLITUS [None]
  - DIABETIC NEPHROPATHY [None]
  - DIABETIC NEUROPATHY [None]
